FAERS Safety Report 9880969 (Version 1)
Quarter: 2014Q1

REPORT INFORMATION
  Report Type: Spontaneous
  Country: US (occurrence: US)
  Receive Date: 20140207
  Receipt Date: 20140207
  Transmission Date: 20141002
  Serious: Yes (Death, Other)
  Sender: FDA-Public Use
  Company Number: US-PFIZER INC-2014034220

PATIENT
  Age: 92 Year
  Sex: Female
  Weight: 65.77 kg

DRUGS (4)
  1. IBUPROFEN [Suspect]
     Dosage: UNK
     Route: 065
  2. XARELTO [Suspect]
     Indication: CEREBROVASCULAR ACCIDENT PROPHYLAXIS
     Dosage: 20 MG, UNK
     Route: 048
     Dates: start: 20131015, end: 20131030
  3. XARELTO [Suspect]
     Indication: ATRIAL FIBRILLATION
  4. IRON [Concomitant]
     Dosage: UNK
     Route: 065

REACTIONS (4)
  - Cardiac failure congestive [Fatal]
  - Anaemia [Unknown]
  - Dyspnoea [Recovered/Resolved]
  - Gastrointestinal haemorrhage [Recovered/Resolved]
